FAERS Safety Report 18774105 (Version 1)
Quarter: 2021Q1

REPORT INFORMATION
  Report Type: Other
  Country: PL (occurrence: PL)
  Receive Date: 20210122
  Receipt Date: 20210122
  Transmission Date: 20210419
  Serious: Yes (Hospitalization, Other)
  Sender: FDA-Public Use
  Company Number: PL-NUVO PHARMACEUTICALS INC-2105705

PATIENT
  Age: 52 Year
  Sex: Male

DRUGS (4)
  1. DIAZEPAM. [Suspect]
     Active Substance: DIAZEPAM
     Indication: EPILEPSY
     Route: 065
  2. LEVETIRACETAM. [Concomitant]
     Active Substance: LEVETIRACETAM
     Route: 065
  3. CARBAMAZEPINE. [Concomitant]
     Active Substance: CARBAMAZEPINE
     Route: 065
  4. GABAPENTIN. [Concomitant]
     Active Substance: GABAPENTIN
     Route: 065

REACTIONS (7)
  - Drug withdrawal syndrome [Unknown]
  - Seizure [Recovered/Resolved]
  - Eyelid myoclonus [Unknown]
  - Aura [Recovered/Resolved]
  - Intentional product misuse [Unknown]
  - Altered state of consciousness [Unknown]
  - Drug dependence [Unknown]

NARRATIVE: CASE EVENT DATE: 2003
